FAERS Safety Report 16879474 (Version 1)
Quarter: 2019Q4

REPORT INFORMATION
  Report Type: Other
  Country: RO (occurrence: RO)
  Receive Date: 20191003
  Receipt Date: 20191003
  Transmission Date: 20200122
  Serious: Yes (Hospitalization)
  Sender: FDA-Public Use
  Company Number: RO-CELLTRION INC.-2019RO025203

PATIENT

DRUGS (1)
  1. REMSIMA [Suspect]
     Active Substance: INFLIXIMAB
     Indication: CROHN^S DISEASE
     Dosage: 5 MG PER KILOGRAM BODY WEIGHT (THE INITIATION DOSE, SECOND WEEK)
     Route: 042
     Dates: start: 20190809, end: 20190823

REACTIONS (2)
  - Dermatitis allergic [Recovered/Resolved]
  - Angioedema [Recovered/Resolved]

NARRATIVE: CASE EVENT DATE: 20190823
